FAERS Safety Report 8103366-4 (Version None)
Quarter: 2012Q1

REPORT INFORMATION
  Report Type: 
  Country: None (occurrence: None)
  Receive Date: 20120201
  Receipt Date: 20120130
  Transmission Date: 20120608
  Serious: Yes (Hospitalization, Other)
  Sender: FDA-Public Use
  Company Number: JP-PFIZER INC-2012025047

PATIENT
  Sex: Male

DRUGS (4)
  1. ZOLPIDEM [Suspect]
     Dosage: UNK
     Route: 064
  2. MIRTAZAPINE [Suspect]
     Dosage: 30 MG/DAY
     Route: 064
  3. ALPRAZOLAM [Suspect]
     Dosage: 0.4 MG/DAY
     Route: 064
  4. ZOLOFT [Suspect]
     Dosage: 75 MG/DAY
     Route: 064

REACTIONS (4)
  - VOMITING [None]
  - IRRITABILITY [None]
  - WITHDRAWAL SYNDROME [None]
  - FOETAL EXPOSURE DURING PREGNANCY [None]
